FAERS Safety Report 10620485 (Version 1)
Quarter: 2014Q4

REPORT INFORMATION
  Report Type: Spontaneous
  Country: IT (occurrence: IT)
  Receive Date: 20141202
  Receipt Date: 20141202
  Transmission Date: 20150529
  Serious: Yes (Hospitalization)
  Sender: FDA-Public Use
  Company Number: IT-WATSON-2013-26219

PATIENT
  Age: 40 Year
  Sex: Female
  Weight: 54 kg

DRUGS (4)
  1. PARACETAMOL  (UNKNOWN) [Suspect]
     Active Substance: ACETAMINOPHEN
     Indication: SCIATICA
     Dosage: 1500 MG DIE
     Route: 048
     Dates: start: 20130510, end: 20130520
  2. DICLOFENAC [Suspect]
     Active Substance: DICLOFENAC
     Indication: SCIATICA
     Dosage: 1 POSOLOGICAL UNIT/DIE
     Route: 030
     Dates: start: 20130506, end: 20130510
  3. FLURBIPROFEN. [Suspect]
     Active Substance: FLURBIPROFEN
     Indication: SCIATICA
     Dosage: 1 POSOLOGIC UNIT/DIE
     Route: 003
     Dates: start: 20130515, end: 20130522
  4. TIOCOLCHICOSIDO [Suspect]
     Active Substance: THIOCOLCHICOSIDE
     Indication: SCIATICA
     Dosage: 1 POSOLOGICAL UNIT/DIE
     Route: 030
     Dates: start: 20130511, end: 20130512

REACTIONS (1)
  - Hepatitis acute [Recovering/Resolving]

NARRATIVE: CASE EVENT DATE: 20130515
